FAERS Safety Report 7941859-0 (Version None)
Quarter: 2011Q4

REPORT INFORMATION
  Report Type: 
  Country: None (occurrence: None)
  Receive Date: 20111128
  Receipt Date: 20111117
  Transmission Date: 20120403
  Serious: Yes (Hospitalization)
  Sender: FDA-Public Use
  Company Number: US-BAYER-201025630NA

PATIENT
  Age: 32 Year
  Sex: Female
  Weight: 91 kg

DRUGS (5)
  1. DROSPIRENONE AND ETHINYL ESTRADIOL [Suspect]
     Dosage: UNK
     Route: 048
     Dates: start: 20010101, end: 20070101
  2. YASMIN [Suspect]
     Dosage: UNK
     Dates: start: 20080601, end: 20081101
  3. DROSPIRENONE AND ETHINYL ESTRADIOL [Suspect]
     Dosage: UNK
     Dates: start: 20080601, end: 20081101
  4. YASMIN [Suspect]
     Dosage: UNK UNK, UNK
     Route: 048
     Dates: start: 20010101, end: 20070101
  5. PREVACID [Concomitant]
     Dosage: 30 MG, UNK

REACTIONS (2)
  - CHOLELITHIASIS [None]
  - CHOLECYSTITIS INFECTIVE [None]
